FAERS Safety Report 24530008 (Version 2)
Quarter: 2024Q4

REPORT INFORMATION
  Report Type: Spontaneous
  Country: UY (occurrence: UY)
  Receive Date: 20241021
  Receipt Date: 20241104
  Transmission Date: 20250115
  Serious: Yes (Hospitalization, Other)
  Sender: NOVARTIS
  Company Number: UY-002147023-NVSC2024UY005578

PATIENT
  Age: 40 Year
  Sex: Male
  Weight: 100 kg

DRUGS (2)
  1. MAYZENT [Suspect]
     Active Substance: SIPONIMOD
     Indication: Secondary progressive multiple sclerosis
     Dosage: 2 MG
     Route: 048
     Dates: start: 20230928
  2. MAYZENT [Suspect]
     Active Substance: SIPONIMOD
     Dosage: 2 MG (TABLET) 5 MONTHS AGO
     Route: 048

REACTIONS (5)
  - Lymphocyte count decreased [Unknown]
  - Serum ferritin increased [Unknown]
  - COVID-19 [Not Recovered/Not Resolved]
  - Expanded disability status scale score increased [Unknown]
  - White blood cell count decreased [Not Recovered/Not Resolved]

NARRATIVE: CASE EVENT DATE: 20231216
